FAERS Safety Report 16573244 (Version 1)
Quarter: 2019Q3

REPORT INFORMATION
  Report Type: Report from Study
  Country: US (occurrence: US)
  Receive Date: 20190715
  Receipt Date: 20190715
  Transmission Date: 20191004
  Serious: Yes (Hospitalization, Other)
  Sender: FDA-Public Use
  Company Number: US-JNJFOC-20190707102

PATIENT

DRUGS (2)
  1. STELARA [Suspect]
     Active Substance: USTEKINUMAB
     Indication: CROHN^S DISEASE
     Dosage: 260 MG (IV) DASE, FOLLOWED BY 90 MG ONCE EVERY EIGHT WEEKS.
     Route: 042
     Dates: start: 2016
  2. STELARA [Suspect]
     Active Substance: USTEKINUMAB
     Route: 058

REACTIONS (4)
  - Crohn^s disease [Unknown]
  - Hospitalisation [Unknown]
  - Off label use [Unknown]
  - Product use issue [Unknown]
